FAERS Safety Report 5659503-4 (Version None)
Quarter: 2008Q1

REPORT INFORMATION
  Report Type: 
  Country: None (occurrence: None)
  Receive Date: 20080311
  Receipt Date: 20080303
  Transmission Date: 20080703
  Serious: Yes (Other)
  Sender: FDA-Public Use
  Company Number: PHHY2008BR02511

PATIENT
  Age: 48 Year
  Sex: Female
  Weight: 53.5 kg

DRUGS (5)
  1. TRILEPTAL [Suspect]
     Indication: DEPRESSION
     Dosage: 2 TABLETS/DAY
     Route: 048
  2. RIVOTRIL [Concomitant]
     Indication: CONFUSIONAL STATE
     Dosage: 1 TABLET AT NIGHT
     Route: 048
     Dates: start: 20010101
  3. MONOCORDIL [Concomitant]
     Indication: ANGINA PECTORIS
     Dosage: 20 MG, BID
     Route: 048
     Dates: start: 20070801
  4. ATENOLOL [Concomitant]
     Indication: HYPERTENSION
     Dosage: 50 MG, QD
     Route: 048
  5. RISPERIDONE [Concomitant]
     Indication: CONFUSIONAL STATE
     Dosage: 1 MG, QD
     Route: 048

REACTIONS (3)
  - BLINDNESS TRANSIENT [None]
  - OCULAR HYPERAEMIA [None]
  - VISION BLURRED [None]
